FAERS Safety Report 6486619-5 (Version None)
Quarter: 2009Q4

REPORT INFORMATION
  Report Type: 
  Country: None (occurrence: None)
  Receive Date: 20091210
  Receipt Date: 20091207
  Transmission Date: 20100525
  Serious: Yes (Death)
  Sender: FDA-Public Use
  Company Number: US-ASTRAZENECA-2009SE30700

PATIENT
  Age: 15 Year
  Sex: Male
  Weight: 60 kg

DRUGS (3)
  1. SEROQUEL [Suspect]
     Indication: ABNORMAL BEHAVIOUR
     Route: 048
  2. LITHIUM [Suspect]
     Indication: ABNORMAL BEHAVIOUR
     Route: 048
  3. FLUVOXAMINE MALEATE [Concomitant]

REACTIONS (11)
  - BRADYCARDIA [None]
  - BRAIN DEATH [None]
  - ELECTROCARDIOGRAM QT PROLONGED [None]
  - ELECTROMECHANICAL DISSOCIATION [None]
  - HYPERGLYCAEMIA [None]
  - HYPERTHERMIA [None]
  - HYPOTENSION [None]
  - HYPOXIC ENCEPHALOPATHY [None]
  - NEUROLEPTIC MALIGNANT SYNDROME [None]
  - RASH [None]
  - RESPIRATORY FAILURE [None]
